FAERS Safety Report 8512102-9 (Version None)
Quarter: 2012Q2

REPORT INFORMATION
  Report Type: 
  Country: None (occurrence: None)
  Receive Date: 20120406
  Receipt Date: 20120126
  Transmission Date: 20120825
  Serious: Yes (Death)
  Sender: FDA-Public Use
  Company Number: US-2012-10150

PATIENT
  Age: 10 Year
  Sex: Female

DRUGS (2)
  1. CYCLOSPHOSPHAMIDE (CYCLOPHOSPHAMIDE) [Concomitant]
  2. BUSULFAN [Suspect]

REACTIONS (1)
  - ACUTE GRAFT VERSUS HOST DISEASE [None]
